FAERS Safety Report 23092682 (Version 1)
Quarter: 2023Q4

REPORT INFORMATION
  Report Type: Spontaneous
  Country: DK (occurrence: DK)
  Receive Date: 20231021
  Receipt Date: 20231021
  Transmission Date: 20240109
  Serious: Yes (Other)
  Sender: FDA-Public Use
  Company Number: None

PATIENT
  Age: 70 Year
  Sex: Female
  Weight: 75 kg

DRUGS (6)
  1. ATORVASTATIN [Suspect]
     Active Substance: ATORVASTATIN
     Indication: Hypercholesterolaemia
     Dates: start: 202011, end: 202109
  2. PEGASYS [Concomitant]
     Active Substance: PEGINTERFERON ALFA-2A
     Indication: Polycythaemia vera
     Dates: start: 202101
  3. METOPROLOL TARTRATE [Concomitant]
     Active Substance: METOPROLOL TARTRATE
     Indication: Hypertension
     Dates: start: 202101
  4. CLOPIDOGREL [Concomitant]
     Active Substance: CLOPIDOGREL BISULFATE
     Indication: Polycythaemia vera
     Dates: start: 202101
  5. CENTYL MITE MED KALIUMKLORID [Concomitant]
     Indication: Hypertension
     Dates: start: 202101
  6. LOSARTAN POTASSIUM [Concomitant]
     Active Substance: LOSARTAN POTASSIUM
     Indication: Hypertension
     Dates: start: 202101

REACTIONS (4)
  - Arthralgia [Not Recovered/Not Resolved]
  - Pain in extremity [Unknown]
  - Joint swelling [Recovered/Resolved]
  - Lupus-like syndrome [Recovered/Resolved]

NARRATIVE: CASE EVENT DATE: 20210101
